FAERS Safety Report 24566068 (Version 1)
Quarter: 2024Q4

REPORT INFORMATION
  Report Type: Report from Study
  Country: CN (occurrence: CN)
  Receive Date: 20241030
  Receipt Date: 20241030
  Transmission Date: 20250115
  Serious: Yes (Other)
  Sender: ROCHE
  Company Number: CN-ROCHE-10000117811

PATIENT

DRUGS (8)
  1. TRASTUZUMAB [Suspect]
     Active Substance: TRASTUZUMAB
     Indication: Adenocarcinoma gastric
     Route: 065
  2. TRASTUZUMAB [Suspect]
     Active Substance: TRASTUZUMAB
     Route: 065
  3. SERPLULIMAB [Suspect]
     Active Substance: SERPLULIMAB
     Indication: Adenocarcinoma gastric
     Route: 065
  4. OXALIPLATIN [Suspect]
     Active Substance: OXALIPLATIN
     Indication: Adenocarcinoma gastric
     Route: 065
  5. DOCETAXEL [Suspect]
     Active Substance: DOCETAXEL
     Indication: Adenocarcinoma gastric
     Route: 042
  6. TEGAFUR [Suspect]
     Active Substance: TEGAFUR
     Indication: Adenocarcinoma gastric
     Route: 065
  7. GIMERACIL [Suspect]
     Active Substance: GIMERACIL
     Indication: Adenocarcinoma gastric
     Route: 065
  8. OTERACIL POTASSIUM [Suspect]
     Active Substance: OTERACIL POTASSIUM
     Indication: Adenocarcinoma gastric
     Route: 065

REACTIONS (4)
  - Myelosuppression [Unknown]
  - Pancreatitis [Unknown]
  - Blood glucose increased [Unknown]
  - Platelet count decreased [Unknown]
